FAERS Safety Report 8876551 (Version 1)
Quarter: 2012Q4

REPORT INFORMATION
  Report Type: 
  Country: US (occurrence: US)
  Receive Date: 20121023
  Receipt Date: 20121023
  Transmission Date: 20130627
  Serious: No
  Sender: FDA-Public Use
  Company Number: US-ASTELLAS-2012US004401

PATIENT
  Sex: Female

DRUGS (2)
  1. PROGRAF [Suspect]
     Indication: RENAL TRANSPLANT
     Dosage: 0.5 mg, bid
     Route: 065
     Dates: start: 2001
  2. PROGRAF [Suspect]
     Dosage: 0.5 mg, UID/QD
     Route: 065

REACTIONS (1)
  - Immunosuppressant drug level increased [Unknown]
